FAERS Safety Report 16648832 (Version 1)
Quarter: 2020Q3

REPORT INFORMATION
  Report Type: Spontaneous
  Country: DE (occurrence: DE)
  Receive Date: 20190730
  Receipt Date: 20190730
  Transmission Date: 20201105
  Serious: Yes (Other)
  Sender: FDA-Public Use
  Company Number: PHHY2019DE173364

PATIENT
  Age: 47 Year
  Sex: Female

DRUGS (4)
  1. PASPERTIN (METOCLOPRAMIDE HYDROCHLORIDE) [Suspect]
     Active Substance: METOCLOPRAMIDE HYDROCHLORIDE
     Indication: NAUSEA
     Dosage: 20 MG, UNK (10?20 MG)
     Route: 048
  2. IDASANUTLIN. [Suspect]
     Active Substance: IDASANUTLIN
     Indication: GLIOBLASTOMA
     Dosage: 100 MG, UNK (AT ESCALATING DOSES FROM 100 MG UNTIL MAXIMUM TOLERATED DOSE ON FIVE CONSECUTIVE DAYS )
     Route: 048
  3. GRANISETRON [Suspect]
     Active Substance: GRANISETRON
     Indication: NAUSEA
     Dosage: 2 MG, QD
     Route: 048
     Dates: start: 20190624, end: 20190628
  4. VOMEX A [Suspect]
     Active Substance: DIMENHYDRINATE
     Indication: NAUSEA
     Dosage: 150 MG, UNK
     Route: 054

REACTIONS (2)
  - Neutropenia [Unknown]
  - Leukopenia [Unknown]

NARRATIVE: CASE EVENT DATE: 20190704
